FAERS Safety Report 6513239-6 (Version None)
Quarter: 2009Q4

REPORT INFORMATION
  Report Type: 
  Country: None (occurrence: None)
  Receive Date: 20091207
  Receipt Date: 20091021
  Transmission Date: 20100525
  Serious: Yes (Hospitalization)
  Sender: FDA-Public Use
  Company Number: 900425310-AKO-9484

PATIENT

DRUGS (1)
  1. AK-FLUOR 10% [Suspect]

REACTIONS (3)
  - CONVULSION [None]
  - HYPERTENSION [None]
  - MYOCARDIAL INFARCTION [None]
